FAERS Safety Report 12488927 (Version 2)
Quarter: 2016Q3

REPORT INFORMATION
  Report Type: Spontaneous
  Country: US (occurrence: US)
  Receive Date: 20160622
  Receipt Date: 20160810
  Transmission Date: 20161109
  Serious: Yes (Other)
  Sender: FDA-Public Use
  Company Number: US-BAYER-2016-120118

PATIENT
  Age: 59 Year
  Sex: Female

DRUGS (23)
  1. THALOMID [Suspect]
     Active Substance: THALIDOMIDE
     Indication: CARCINOID TUMOUR OF THE STOMACH
     Dosage: 50 MG, UNK
     Route: 048
     Dates: start: 201403
  2. OMEPRAZOLE. [Concomitant]
     Active Substance: OMEPRAZOLE
     Dosage: 20 MG, UNK
     Route: 048
  3. ACETYLSALICYLIC ACID (} 100 MG) [Suspect]
     Active Substance: ASPIRIN
     Indication: PRODUCT USED FOR UNKNOWN INDICATION
     Dosage: 325 MG, UNK
     Route: 065
  4. AROMASIN [Concomitant]
     Active Substance: EXEMESTANE
     Dosage: 25 MG, UNK
     Route: 065
  5. LIPITOR [Concomitant]
     Active Substance: ATORVASTATIN CALCIUM
     Dosage: UNK
     Route: 065
  6. RANITIDINE. [Concomitant]
     Active Substance: RANITIDINE
     Dosage: 300 MG, UNK
     Route: 065
  7. THALOMID [Suspect]
     Active Substance: THALIDOMIDE
     Indication: CARCINOID TUMOUR OF THE STOMACH
     Dosage: 50 MG, QID
     Route: 048
     Dates: start: 200510
  8. THALOMID [Suspect]
     Active Substance: THALIDOMIDE
     Indication: CARCINOID TUMOUR OF THE STOMACH
     Dosage: 50 MG, QID
     Route: 048
     Dates: start: 201203
  9. THALOMID [Suspect]
     Active Substance: THALIDOMIDE
     Indication: CARCINOID TUMOUR OF THE STOMACH
     Dosage: 200 MG, QD
     Route: 048
     Dates: start: 201501
  10. DEXAMETHASONE. [Concomitant]
     Active Substance: DEXAMETHASONE
     Dosage: UNK
     Route: 065
  11. AMLODIPINE BESYLATE. [Concomitant]
     Active Substance: AMLODIPINE BESYLATE
     Dosage: UNK
     Route: 065
  12. XARELTO [Suspect]
     Active Substance: RIVAROXABAN
     Indication: CEREBROVASCULAR ACCIDENT
     Dosage: UNK
     Route: 048
     Dates: start: 2015
  13. THALOMID [Suspect]
     Active Substance: THALIDOMIDE
     Indication: CARCINOID TUMOUR OF THE STOMACH
     Dosage: 50 MG, QID
     Route: 048
     Dates: start: 201601
  14. LISINOPRIL. [Concomitant]
     Active Substance: LISINOPRIL
     Indication: HYPERTENSION
     Dosage: 40 MG, UNK
     Route: 048
  15. THALOMID [Suspect]
     Active Substance: THALIDOMIDE
     Indication: CARCINOID TUMOUR OF THE STOMACH
     Dosage: 50 MG, QD
     Route: 048
     Dates: start: 201502
  16. ALLOPURINOL. [Concomitant]
     Active Substance: ALLOPURINOL
     Dosage: 100 MG, UNK
     Route: 065
  17. CLOTRIMAZOL [Concomitant]
     Active Substance: CLOTRIMAZOLE
     Dosage: UNK
     Route: 065
  18. THALOMID [Suspect]
     Active Substance: THALIDOMIDE
     Indication: CARCINOID TUMOUR OF THE STOMACH
     Dosage: 50 MG, QID
     Route: 048
     Dates: start: 20101201
  19. THALOMID [Suspect]
     Active Substance: THALIDOMIDE
     Indication: CARCINOID TUMOUR OF THE STOMACH
     Dosage: 50 MG, UNK
     Route: 048
     Dates: start: 201509
  20. ALFUZOSIN HYDROCHLORIDE. [Concomitant]
     Active Substance: ALFUZOSIN HYDROCHLORIDE
     Dosage: 10 MG, UNK
     Route: 065
  21. COLCHICINE. [Concomitant]
     Active Substance: COLCHICINE
     Dosage: 0.6 MG, UNK
     Route: 065
  22. SANDOSTATIN [Concomitant]
     Active Substance: OCTREOTIDE ACETATE
     Dosage: UNK
     Route: 065
  23. LORATADINE. [Concomitant]
     Active Substance: LORATADINE
     Dosage: UNK
     Route: 065

REACTIONS (2)
  - Arthralgia [Unknown]
  - Haemorrhage [Unknown]

NARRATIVE: CASE EVENT DATE: 201503
